FAERS Safety Report 5620100-8 (Version None)
Quarter: 2008Q1

REPORT INFORMATION
  Report Type: 
  Country: None (occurrence: None)
  Receive Date: 20080208
  Receipt Date: 20080129
  Transmission Date: 20080703
  Serious: Yes (Other)
  Sender: FDA-Public Use
  Company Number: US-MERCK-0712USA07924

PATIENT
  Age: 54 Year
  Sex: Female
  Weight: 61 kg

DRUGS (15)
  1. PRIMAXIN [Suspect]
     Indication: MYCOBACTERIAL INFECTION
     Route: 042
     Dates: start: 20070502, end: 20071215
  2. AMIKACIN SULFATE [Concomitant]
     Indication: MYCOBACTERIAL INFECTION
     Route: 042
     Dates: start: 20070502
  3. AMIKACIN SULFATE [Concomitant]
     Route: 042
     Dates: start: 20070503
  4. FUROSEMIDE [Concomitant]
     Route: 048
  5. POTASSIUM (UNSPECIFIED) [Concomitant]
     Route: 048
  6. MUCINEX [Concomitant]
     Route: 048
  7. ADVAIR DISKUS 100/50 [Concomitant]
  8. PROVENTIL [Concomitant]
  9. NEXIUM [Concomitant]
     Route: 048
  10. ZITHROMAX [Concomitant]
     Route: 048
     Dates: start: 20070530
  11. GUAIFENESIN [Concomitant]
     Route: 048
  12. CALCIUM (UNSPECIFIED) [Concomitant]
     Route: 048
  13. CENTRUM SILVER [Concomitant]
     Route: 048
  14. CLINDAMYCIN [Concomitant]
     Route: 065
  15. [THERAPY UNSPECIFIED] [Concomitant]
     Route: 061

REACTIONS (8)
  - BLISTER [None]
  - INJECTION SITE DISCHARGE [None]
  - INSOMNIA [None]
  - PAIN [None]
  - PRURITUS [None]
  - PYREXIA [None]
  - RASH [None]
  - SWELLING [None]
